FAERS Safety Report 13998312 (Version 1)
Quarter: 2017Q3

REPORT INFORMATION
  Report Type: Spontaneous
  Country: US (occurrence: US)
  Receive Date: 20170921
  Receipt Date: 20170921
  Transmission Date: 20171128
  Serious: No
  Sender: FDA-Public Use
  Company Number: US-PFIZER INC-2017409632

PATIENT
  Age: 74 Year
  Sex: Female

DRUGS (2)
  1. MANNITOL. [Suspect]
     Active Substance: MANNITOL
  2. SORBITOL. [Suspect]
     Active Substance: SORBITOL
     Dosage: UNK

REACTIONS (2)
  - Diarrhoea [Unknown]
  - Drug hypersensitivity [Unknown]
